FAERS Safety Report 4983877-0 (Version None)
Quarter: 2006Q2

REPORT INFORMATION
  Report Type: 
  Country: None (occurrence: None)
  Receive Date: 20060426
  Receipt Date: 20050517
  Transmission Date: 20061013
  Serious: Yes (Hospitalization)
  Sender: FDA-Public Use
  Company Number: US-MERCK-0505USA02090

PATIENT
  Age: 70 Year
  Sex: Female
  Weight: 114 kg

DRUGS (1)
  1. VIOXX [Suspect]
     Indication: ARTHRITIS
     Route: 048
     Dates: start: 19991001, end: 20020101

REACTIONS (2)
  - INJURY [None]
  - MYOCARDIAL INFARCTION [None]
